FAERS Safety Report 9142915 (Version 5)
Quarter: 2013Q2

REPORT INFORMATION
  Report Type: Spontaneous
  Country: US (occurrence: US)
  Receive Date: 20130306
  Receipt Date: 20130522
  Transmission Date: 20140414
  Serious: Yes (Hospitalization, Other)
  Sender: FDA-Public Use
  Company Number: US-PFIZER INC-2013074627

PATIENT
  Age: 55 Year
  Sex: Male
  Weight: 113 kg

DRUGS (8)
  1. SUTENT [Suspect]
     Indication: METASTATIC RENAL CELL CARCINOMA
     Dosage: 50 MG, CYCLIC, 28 DAYS WITH 14 DAYS OFF
     Dates: start: 20130223
  2. SUTENT [Suspect]
     Dosage: 3 WEEKS ON AND 2 WEEKS OFF
  3. LITHOBID [Concomitant]
     Dosage: 300 MG, 2X/DAY
  4. METFORMIN [Concomitant]
     Dosage: 1000 MG, 2X/DAY
  5. CIPRO [Concomitant]
     Dosage: 500 MG, 2X/DAY
  6. KEFLEX [Concomitant]
     Dosage: 500 MG, 2X/DAY
  7. FLAGYL [Concomitant]
     Dosage: UNK
  8. NORVASC [Concomitant]
     Dosage: UNK

REACTIONS (18)
  - Bladder disorder [Unknown]
  - Blood urine present [Not Recovered/Not Resolved]
  - Urethral injury [Recovered/Resolved]
  - Urinary tract infection [Unknown]
  - Fatigue [Recovering/Resolving]
  - Dysgeusia [Recovering/Resolving]
  - Decreased appetite [Recovering/Resolving]
  - Hair colour changes [Recovering/Resolving]
  - Oral pain [Recovering/Resolving]
  - Glossodynia [Recovering/Resolving]
  - Blood pressure increased [Unknown]
  - Haemoglobin abnormal [Unknown]
  - Infection [Unknown]
  - Stomatitis [Unknown]
  - Pyrexia [Unknown]
  - Local swelling [Unknown]
  - Dysphagia [Unknown]
  - Feeling abnormal [Unknown]
